FAERS Safety Report 26214723 (Version 1)
Quarter: 2025Q4

REPORT INFORMATION
  Report Type: Spontaneous
  Country: GB (occurrence: GB)
  Receive Date: 20251230
  Receipt Date: 20251230
  Transmission Date: 20260118
  Serious: Yes (Disabling)
  Sender: PFIZER
  Company Number: None

PATIENT
  Age: 39 Year
  Sex: Male

DRUGS (1)
  1. VELSIPITY [Suspect]
     Active Substance: ETRASIMOD ARGININE
     Dosage: 2 MG, 1X/DAY
     Dates: start: 20251216, end: 20251219

REACTIONS (4)
  - Nausea [Recovered/Resolved]
  - Illness [Recovered/Resolved]
  - Dyspnoea [Recovered/Resolved]
  - Pain [Recovered/Resolved]

NARRATIVE: CASE EVENT DATE: 20251216
